FAERS Safety Report 8091785-4 (Version None)
Quarter: 2012Q1

REPORT INFORMATION
  Report Type: 
  Country: None (occurrence: None)
  Receive Date: 20120129
  Receipt Date: 20111115
  Transmission Date: 20120608
  Serious: No
  Sender: FDA-Public Use
  Company Number: US-ABBOTT-11P-163-0874118-00

PATIENT
  Sex: Female
  Weight: 65.83 kg

DRUGS (9)
  1. FLU SHOT (NON-ABBOTT) [Suspect]
     Indication: ANTIVIRAL PROPHYLAXIS
     Dates: start: 20111024, end: 20111024
  2. UNNAMED MUSCLE RELAXOR [Concomitant]
     Indication: PRODUCT USED FOR UNKNOWN INDICATION
  3. FOLIC ACID [Concomitant]
     Indication: VITAMIN SUPPLEMENTATION
  4. ASPIRIN [Concomitant]
     Indication: PROPHYLAXIS
  5. METHOTREXATE [Concomitant]
     Indication: RHEUMATOID ARTHRITIS
  6. CALCIUM [Concomitant]
     Indication: MINERAL SUPPLEMENTATION
  7. HUMIRA [Suspect]
     Indication: RHEUMATOID ARTHRITIS
  8. MULTI-VITAMINS [Concomitant]
     Indication: VITAMIN SUPPLEMENTATION
  9. GLUCOSAMINE [Concomitant]
     Indication: PROPHYLAXIS

REACTIONS (7)
  - ARTHRALGIA [None]
  - MALAISE [None]
  - MYALGIA [None]
  - HYPOAESTHESIA [None]
  - MUSCULOSKELETAL PAIN [None]
  - PARAESTHESIA [None]
  - MUSCLE TIGHTNESS [None]
